FAERS Safety Report 11854832 (Version 2)
Quarter: 2016Q2

REPORT INFORMATION
  Report Type: Spontaneous
  Country: US (occurrence: US)
  Receive Date: 20151221
  Receipt Date: 20160509
  Transmission Date: 20160815
  Serious: No
  Sender: FDA-Public Use
  Company Number: US-CELGENEUS-USA-2015123954

PATIENT
  Sex: Male

DRUGS (6)
  1. CALCIPOTRIENE BETAMETHASONE [Concomitant]
     Indication: PSORIASIS
     Route: 065
     Dates: start: 201510
  2. TACLONEX [Concomitant]
     Active Substance: BETAMETHASONE DIPROPIONATE\CALCIPOTRIENE\CALCIPOTRIENE HYDRATE
     Indication: PSORIASIS
     Route: 065
  3. ENBREL [Concomitant]
     Active Substance: ETANERCEPT
     Indication: PSORIASIS
     Route: 065
     Dates: start: 201511, end: 201603
  4. TRIAMCINOLONE [Concomitant]
     Active Substance: TRIAMCINOLONE
     Indication: PSORIASIS
     Route: 065
  5. DERMA SMOOTHE [Concomitant]
     Indication: PSORIASIS
     Route: 065
     Dates: start: 201403
  6. OTEZLA [Suspect]
     Active Substance: APREMILAST
     Indication: PRODUCT USED FOR UNKNOWN INDICATION
     Dosage: 60 MILLIGRAM
     Route: 048
     Dates: start: 20151109

REACTIONS (1)
  - Diarrhoea [Recovered/Resolved]
